FAERS Safety Report 8682953 (Version 3)
Quarter: 2012Q4

REPORT INFORMATION
  Report Type: 
  Country: DE (occurrence: DE)
  Receive Date: 20120725
  Receipt Date: 20120907
  Transmission Date: 20130627
  Serious: Yes (Death, Hospitalization)
  Sender: FDA-Public Use
  Company Number: DE-GLAXOSMITHKLINE-D0076420A

PATIENT
  Age: 85 None
  Sex: Male
  Weight: 75 kg

DRUGS (8)
  1. ARIXTRA [Suspect]
     Indication: OFF LABEL USE
     Dosage: 7.5MG Per day
     Route: 058
     Dates: start: 20120712, end: 20120715
  2. TOREM [Concomitant]
     Dosage: 10MG Unknown
     Route: 065
  3. TAMSULOSIN [Concomitant]
     Dosage: .4MG Unknown
     Route: 048
  4. METOPROLOL [Concomitant]
     Dosage: 95MG Unknown
     Route: 048
  5. DIGITOXIN [Concomitant]
     Dosage: .07MG Unknown
     Route: 048
  6. DELIX [Concomitant]
     Dosage: 5MG Unknown
     Route: 048
  7. PENTALONG [Concomitant]
     Dosage: 50MG Twice per day
     Route: 048
  8. INSPRA [Concomitant]
     Dosage: 25MG Unknown
     Route: 048

REACTIONS (7)
  - Haemorrhage [Fatal]
  - Shock haemorrhagic [Fatal]
  - Retroperitoneal haematoma [Fatal]
  - Multi-organ failure [Fatal]
  - Abdominal wall haematoma [Unknown]
  - Haemodynamic instability [Unknown]
  - Intra-abdominal haemorrhage [Unknown]
